FAERS Safety Report 25372354 (Version 4)
Quarter: 2025Q3

REPORT INFORMATION
  Report Type: Report from Study
  Country: US (occurrence: US)
  Receive Date: 20250529
  Receipt Date: 20250815
  Transmission Date: 20251021
  Serious: Yes (Other)
  Sender: ABBVIE
  Company Number: US-ABBVIE-6297280

PATIENT
  Age: 70 Year
  Sex: Female
  Weight: 77.11 kg

DRUGS (2)
  1. RINVOQ [Suspect]
     Active Substance: UPADACITINIB
     Indication: Rheumatoid arthritis
     Dosage: FROM STRENGTH: 15 MILLIGRAM
     Route: 048
     Dates: start: 20231223, end: 202410
  2. RINVOQ [Suspect]
     Active Substance: UPADACITINIB
     Indication: Rheumatoid arthritis
     Dosage: FROM STRENGTH: 15 MILLIGRAM
     Route: 048
     Dates: start: 202411, end: 20250421

REACTIONS (14)
  - Osteoarthritis [Recovered/Resolved]
  - Migraine [Recovered/Resolved]
  - Blood chloride decreased [Recovering/Resolving]
  - COVID-19 [Recovering/Resolving]
  - Fall [Recovered/Resolved]
  - Weight decreased [Not Recovered/Not Resolved]
  - Loss of consciousness [Recovered/Resolved]
  - Syncope [Recovered/Resolved]
  - Blood sodium abnormal [Recovering/Resolving]
  - Joint noise [Recovered/Resolved]
  - Dizziness [Not Recovered/Not Resolved]
  - Dyspnoea [Unknown]
  - Fall [Recovered/Resolved]
  - Dizziness [Recovered/Resolved]

NARRATIVE: CASE EVENT DATE: 20230101
